FAERS Safety Report 6546060-3 (Version None)
Quarter: 2010Q1

REPORT INFORMATION
  Report Type: 
  Country: None (occurrence: None)
  Receive Date: 20100119
  Receipt Date: 20100101
  Transmission Date: 20100710
  Serious: Yes (Hospitalization, Other)
  Sender: FDA-Public Use
  Company Number: AUR-APL-2010-00010

PATIENT
  Age: 74 Year
  Sex: Female

DRUGS (7)
  1. RISPERIDONE [Suspect]
     Indication: AGGRESSION
     Dosage: 0.0156-1MG, PRN
  2. CITALOPRAM [Suspect]
     Indication: DEPRESSION
     Dosage: 40MG, DAILY
  3. LEVOTHYROXINE SODIUM [Concomitant]
  4. MEMANTINE [Concomitant]
  5. DONEPEZIL HCL [Concomitant]
  6. ATENOLOL [Concomitant]
  7. BABY ASPIRIN [Concomitant]

REACTIONS (17)
  - AGGRESSION [None]
  - ALANINE AMINOTRANSFERASE INCREASED [None]
  - ASPARTATE AMINOTRANSFERASE INCREASED [None]
  - BALANCE DISORDER [None]
  - BLOOD CREATININE INCREASED [None]
  - CLONUS [None]
  - DIARRHOEA [None]
  - DISORIENTATION [None]
  - GAIT DISTURBANCE [None]
  - HYPERHIDROSIS [None]
  - HYPERREFLEXIA [None]
  - MUSCLE RIGIDITY [None]
  - NAUSEA [None]
  - THERAPEUTIC AGENT TOXICITY [None]
  - TREMOR [None]
  - URINARY TRACT INFECTION [None]
  - VOMITING [None]
